FAERS Safety Report 20134635 (Version 1)
Quarter: 2021Q4

REPORT INFORMATION
  Report Type: Spontaneous
  Country: FR (occurrence: None)
  Receive Date: 20211201
  Receipt Date: 20211201
  Transmission Date: 20220303
  Serious: Yes (Other)
  Sender: FDA-Public Use
  Company Number: FR-ROCHE-2956483

PATIENT
  Sex: Female

DRUGS (1)
  1. TOCILIZUMAB [Suspect]
     Active Substance: TOCILIZUMAB
     Indication: Polychondritis
     Dosage: 400 MG/20 ML 1, DOSING: 800 MG/MONTH
     Route: 042
     Dates: start: 202105

REACTIONS (2)
  - Off label use [Unknown]
  - Neuromyelitis optica spectrum disorder [Unknown]
